FAERS Safety Report 13440388 (Version 13)
Quarter: 2018Q1

REPORT INFORMATION
  Report Type: Report from Study
  Country: PL (occurrence: PL)
  Receive Date: 20170413
  Receipt Date: 20180302
  Transmission Date: 20180508
  Serious: Yes (Other)
  Sender: FDA-Public Use
  Company Number: PL-ROCHE-1915958

PATIENT
  Age: 45 Year
  Sex: Female
  Weight: 45.94 kg

DRUGS (89)
  1. DOXYCYCLINUM [Concomitant]
     Route: 065
     Dates: start: 20170529, end: 20170718
  2. DEXAMETHASONE. [Concomitant]
     Active Substance: DEXAMETHASONE
     Route: 065
     Dates: start: 20171009, end: 20171012
  3. DOXORUBICIN [Concomitant]
     Active Substance: DOXORUBICIN
     Route: 065
     Dates: start: 20170828, end: 20170828
  4. DOXORUBICIN [Concomitant]
     Active Substance: DOXORUBICIN
     Route: 065
     Dates: start: 20170918, end: 20170918
  5. TORECAN [Concomitant]
     Active Substance: THIETHYLPERAZINE MALATE
     Route: 065
     Dates: start: 20170808
  6. DEXAVEN [Concomitant]
     Active Substance: DEXAMETHASONE
     Route: 065
     Dates: start: 20180117, end: 20180117
  7. DEXAVEN [Concomitant]
     Active Substance: DEXAMETHASONE
     Route: 065
     Dates: start: 20180124, end: 20180124
  8. METOCLOPRAMID [Concomitant]
     Active Substance: METOCLOPRAMIDE
     Route: 065
     Dates: start: 20171228, end: 20171228
  9. RANIC [Concomitant]
     Active Substance: RANITIDINE HYDROCHLORIDE
     Route: 065
     Dates: start: 20180104, end: 20180104
  10. NYSTATYNA [Concomitant]
     Route: 065
     Dates: start: 20170828
  11. HEPAREGEN [Concomitant]
     Route: 065
     Dates: start: 20171120
  12. RAMOCLAV [Concomitant]
     Active Substance: AMOXICILLIN\CLAVULANATE POTASSIUM
     Route: 065
     Dates: start: 20180127, end: 20180210
  13. PLACEBO [Suspect]
     Active Substance: UNSPECIFIED INGREDIENT
     Indication: RELAPSING-REMITTING MULTIPLE SCLEROSIS
     Dosage: GIVEN AS DUAL INFUSIONS ON DAYS 1 AND 15 OF THE FIRST 24- WEEK TREATMENT CYCLE AND AS SINGLE INFUSIO
     Route: 042
     Dates: start: 20120125, end: 20130612
  14. IBUPROM MAX [Concomitant]
     Indication: PREMEDICATION
     Dosage: ADMINISTERED ON THE SAME DATES AS BLINDED AND OPEN LABEL OCRELIZUMAB
     Route: 065
     Dates: start: 20120125
  15. LORATAN [Concomitant]
     Indication: PREMEDICATION
     Dosage: FURTHER DOSE ON 09/FEB/2012
     Route: 065
     Dates: start: 20120125
  16. DOXYCYCLINUM [Concomitant]
     Route: 065
     Dates: start: 20171009, end: 20171009
  17. CYKLOFOSFAMID [Concomitant]
     Active Substance: CYCLOPHOSPHAMIDE
     Route: 065
     Dates: start: 20170808, end: 20170808
  18. DEXAMETHASONE. [Concomitant]
     Active Substance: DEXAMETHASONE
     Route: 065
     Dates: start: 20170918, end: 20170921
  19. ONDASETRON [Concomitant]
     Active Substance: ONDANSETRON
     Indication: PREMEDICATION
     Route: 065
     Dates: start: 20170808, end: 20170808
  20. NATRIUM CHLORATUM [Concomitant]
     Route: 065
     Dates: start: 20171204, end: 20171204
  21. CLEMASTINUM [Concomitant]
     Active Substance: CLEMASTINE FUMARATE
     Route: 065
     Dates: start: 20171106, end: 20171106
  22. RANIC [Concomitant]
     Active Substance: RANITIDINE HYDROCHLORIDE
     Route: 065
     Dates: start: 20180110, end: 20180110
  23. RANIC [Concomitant]
     Active Substance: RANITIDINE HYDROCHLORIDE
     Route: 065
     Dates: start: 20180117, end: 20180117
  24. INTERFERON BETA-1A [Suspect]
     Active Substance: INTERFERON BETA-1A
     Indication: RELAPSING-REMITTING MULTIPLE SCLEROSIS
     Dosage: DOSING AS PER PROTOCOL?THE LAST DOSE OF INTERFERON BETA 1-A WAS ON 18/DEC/2013
     Route: 058
     Dates: start: 20120125, end: 20131218
  25. DOXYCYCLINUM [Concomitant]
     Route: 065
     Dates: start: 20171009, end: 20171011
  26. DEXAMETHASONE. [Concomitant]
     Active Substance: DEXAMETHASONE
     Route: 065
     Dates: start: 20170828, end: 20170831
  27. EMEND [Concomitant]
     Active Substance: APREPITANT
     Route: 065
     Dates: start: 20170828, end: 20170830
  28. EMEND [Concomitant]
     Active Substance: APREPITANT
     Route: 065
     Dates: start: 20171009, end: 20171011
  29. ONDASETRON [Concomitant]
     Active Substance: ONDANSETRON
     Route: 065
     Dates: start: 20171009, end: 20171009
  30. CLEMASTINUM [Concomitant]
     Active Substance: CLEMASTINE FUMARATE
     Route: 065
     Dates: start: 20171218, end: 20171218
  31. DEXAVEN [Concomitant]
     Active Substance: DEXAMETHASONE
     Route: 065
     Dates: start: 20180104, end: 20180104
  32. RANIC [Concomitant]
     Active Substance: RANITIDINE HYDROCHLORIDE
     Route: 065
     Dates: start: 20180124, end: 20180124
  33. DEXAMETHASONE. [Concomitant]
     Active Substance: DEXAMETHASONE
     Route: 065
     Dates: start: 20170918, end: 20170918
  34. DEXAMETHASONE. [Concomitant]
     Active Substance: DEXAMETHASONE
     Route: 065
     Dates: start: 20170828, end: 20170828
  35. SETRONON [Concomitant]
     Active Substance: ONDANSETRON HYDROCHLORIDE
     Route: 065
     Dates: start: 20170808
  36. NATRIUM CHLORATUM [Concomitant]
     Route: 065
     Dates: start: 20170828, end: 20170828
  37. NATRIUM CHLORATUM [Concomitant]
     Route: 065
     Dates: start: 20170918, end: 20170918
  38. CLEMASTINUM [Concomitant]
     Active Substance: CLEMASTINE FUMARATE
     Route: 065
     Dates: start: 20180104, end: 20180104
  39. DEXAVEN [Concomitant]
     Active Substance: DEXAMETHASONE
     Route: 065
     Dates: start: 20171228, end: 20171228
  40. METOCLOPRAMID [Concomitant]
     Active Substance: METOCLOPRAMIDE
     Route: 065
     Dates: start: 20171030, end: 20171030
  41. OCRELIZUMAB. [Suspect]
     Active Substance: OCRELIZUMAB
     Indication: RELAPSING-REMITTING MULTIPLE SCLEROSIS
     Dosage: 600 MG GIVEN AS DUAL INFUSIONS ON DAYS 1 AND 15 OF THE FIRST 24- WEEK TREATMENT CYCLE ?FURTHER DOSES
     Route: 042
     Dates: start: 20131219
  42. DEXAMETHASONE. [Concomitant]
     Active Substance: DEXAMETHASONE
     Route: 065
     Dates: start: 20170919
  43. DEXAMETHASONE. [Concomitant]
     Active Substance: DEXAMETHASONE
     Route: 065
     Dates: start: 20170808, end: 20170808
  44. DEXAMETHASONE. [Concomitant]
     Active Substance: DEXAMETHASONE
     Route: 065
     Dates: start: 20171009, end: 20171009
  45. EMEND [Concomitant]
     Active Substance: APREPITANT
     Indication: PREMEDICATION
     Route: 065
     Dates: start: 20170808, end: 20170810
  46. EMEND [Concomitant]
     Active Substance: APREPITANT
     Route: 065
     Dates: start: 20170918, end: 20170920
  47. ONDASETRON [Concomitant]
     Active Substance: ONDANSETRON
     Route: 065
     Dates: start: 20171009, end: 20171009
  48. NATRIUM CHLORATUM [Concomitant]
     Route: 065
     Dates: start: 20171030, end: 20171030
  49. CLEMASTINUM [Concomitant]
     Active Substance: CLEMASTINE FUMARATE
     Route: 065
     Dates: start: 20171030, end: 20171030
  50. DEXAVEN [Concomitant]
     Active Substance: DEXAMETHASONE
     Route: 065
     Dates: start: 20171030, end: 20171030
  51. DEXAVEN [Concomitant]
     Active Substance: DEXAMETHASONE
     Route: 065
     Dates: start: 20171106, end: 20171106
  52. RANIC [Concomitant]
     Active Substance: RANITIDINE HYDROCHLORIDE
     Route: 065
     Dates: start: 20171204, end: 20171204
  53. RANIC [Concomitant]
     Active Substance: RANITIDINE HYDROCHLORIDE
     Route: 065
     Dates: start: 20171228, end: 20171228
  54. METOCLOPRAMIDUM [Concomitant]
     Route: 065
     Dates: start: 20171106, end: 20171106
  55. LIOTON [Concomitant]
     Route: 065
     Dates: start: 20170828
  56. GLUCOSUM 5% [Concomitant]
     Route: 065
     Dates: start: 20171009, end: 20171009
  57. OCRELIZUMAB. [Suspect]
     Active Substance: OCRELIZUMAB
     Dosage: SINGLE INFUSIONS ON DAY 1 FOR EACH 24-WEEK TREATMENT CYCLE, AFTER CYCLE 1.?19/NOV/2014 (WEEK 48; LOT
     Route: 042
     Dates: start: 20140604
  58. NATRIUM CHLORATUM [Concomitant]
     Route: 065
     Dates: start: 20170808, end: 20170808
  59. POLYETHYLENE GLYCOL [Concomitant]
     Active Substance: POLYETHYLENE GLYCOLS
     Route: 065
     Dates: start: 20170918, end: 20170918
  60. RANIC [Concomitant]
     Active Substance: RANITIDINE HYDROCHLORIDE
     Route: 065
     Dates: start: 20171106, end: 20171106
  61. RANIC [Concomitant]
     Active Substance: RANITIDINE HYDROCHLORIDE
     Route: 065
     Dates: start: 20171218, end: 20171218
  62. METHYLPREDNISOLONE. [Concomitant]
     Active Substance: METHYLPREDNISOLONE
     Indication: PREMEDICATION
     Dosage: ADMINISTERED ON THE SAME DATES AS BLINDED AND OPEN LABEL OCRELIZUMAB
     Route: 065
     Dates: start: 20120125, end: 20170313
  63. LORATADYNA [Concomitant]
     Indication: PREMEDICATION
     Dosage: ADMINISTERED ON THE SAME DATES AS BLINDED (FROM WEEK 24) AND OPEN LABEL OCRELIZUMAB
     Route: 065
     Dates: start: 20120711, end: 20170313
  64. PARACETAMOL [Concomitant]
     Active Substance: ACETAMINOPHEN
     Route: 065
     Dates: start: 20120206, end: 20120206
  65. CYKLOFOSFAMID [Concomitant]
     Active Substance: CYCLOPHOSPHAMIDE
     Route: 065
     Dates: start: 20170828, end: 20170828
  66. CYKLOFOSFAMID [Concomitant]
     Active Substance: CYCLOPHOSPHAMIDE
     Route: 065
     Dates: start: 20170918, end: 20170918
  67. DOXORUBICIN [Concomitant]
     Active Substance: DOXORUBICIN
     Route: 042
     Dates: start: 20170808, end: 20170808
  68. ONDASETRON [Concomitant]
     Active Substance: ONDANSETRON
     Route: 065
     Dates: start: 20170828, end: 20170828
  69. TORECAN [Concomitant]
     Active Substance: THIETHYLPERAZINE MALATE
     Route: 065
     Dates: start: 20170809
  70. NATRIUM CHLORATUM [Concomitant]
     Route: 065
     Dates: start: 20171106, end: 20171106
  71. CLEMASTINUM [Concomitant]
     Active Substance: CLEMASTINE FUMARATE
     Route: 065
     Dates: start: 20171228, end: 20171228
  72. CLEMASTINUM [Concomitant]
     Active Substance: CLEMASTINE FUMARATE
     Route: 065
     Dates: start: 20180110, end: 20180110
  73. CLEMASTINUM [Concomitant]
     Active Substance: CLEMASTINE FUMARATE
     Route: 065
     Dates: start: 20180117, end: 20180117
  74. LAKTULOS [Concomitant]
     Route: 065
     Dates: start: 20170828
  75. IBUPROM MAX [Concomitant]
     Route: 065
     Dates: start: 20170313
  76. PARACETAMOL [Concomitant]
     Active Substance: ACETAMINOPHEN
     Route: 065
     Dates: start: 201410
  77. CYKLOFOSFAMID [Concomitant]
     Active Substance: CYCLOPHOSPHAMIDE
     Route: 065
     Dates: start: 20171009, end: 20171009
  78. DEXAMETHASONE. [Concomitant]
     Active Substance: DEXAMETHASONE
     Indication: PREMEDICATION
     Route: 065
     Dates: start: 20170808, end: 20170811
  79. EMEND [Concomitant]
     Active Substance: APREPITANT
     Route: 065
     Dates: start: 20170919
  80. EMANERA [Concomitant]
     Active Substance: ESOMEPRAZOLE MAGNESIUM
     Route: 065
     Dates: start: 20170809
  81. EMANERA [Concomitant]
     Active Substance: ESOMEPRAZOLE MAGNESIUM
     Route: 065
     Dates: start: 20170919
  82. NATRIUM CHLORATUM [Concomitant]
     Route: 065
     Dates: start: 20171009, end: 20171009
  83. CLEMASTINUM [Concomitant]
     Active Substance: CLEMASTINE FUMARATE
     Route: 065
     Dates: start: 20171204, end: 20171204
  84. CLEMASTINUM [Concomitant]
     Active Substance: CLEMASTINE FUMARATE
     Route: 065
     Dates: start: 20180124, end: 20180124
  85. DEXAVEN [Concomitant]
     Active Substance: DEXAMETHASONE
     Route: 065
     Dates: start: 20171218, end: 20171218
  86. DEXAVEN [Concomitant]
     Active Substance: DEXAMETHASONE
     Route: 065
     Dates: start: 20180110, end: 20180110
  87. RANIC [Concomitant]
     Active Substance: RANITIDINE HYDROCHLORIDE
     Route: 065
     Dates: start: 20171030, end: 20171030
  88. RANIC [Concomitant]
     Active Substance: RANITIDINE HYDROCHLORIDE
     Route: 065
     Dates: start: 20180117, end: 20180117
  89. GLUCOSUM 5% [Concomitant]
     Route: 065
     Dates: start: 20171106, end: 20171106

REACTIONS (1)
  - Invasive ductal breast carcinoma [Recovered/Resolved]

NARRATIVE: CASE EVENT DATE: 20170303
